FAERS Safety Report 8341735-8 (Version None)
Quarter: 2012Q2

REPORT INFORMATION
  Report Type: 
  Country: None (occurrence: None)
  Receive Date: 20120507
  Receipt Date: 20120502
  Transmission Date: 20120825
  Serious: Yes (Hospitalization)
  Sender: FDA-Public Use
  Company Number: DE-PFIZER INC-DE-WYE-H11870509

PATIENT
  Age: 70 Year
  Sex: Male

DRUGS (7)
  1. DIPIPERON [Concomitant]
     Indication: SLEEP DISORDER
     Dosage: 12 MG, 1X/DAY
     Route: 048
     Dates: start: 20080601
  2. MADOPAR [Concomitant]
     Dosage: UNK
     Route: 048
     Dates: start: 20070201
  3. BERLTHYROX [Concomitant]
     Indication: THYROID CANCER
     Dosage: 100 MCG, 1X/DAY
     Route: 048
     Dates: start: 20070201
  4. NOVAMINSULFON-RATIOPHARM [Concomitant]
     Dosage: UNK
     Route: 048
     Dates: start: 20080601
  5. PANTOPRAZOLE [Suspect]
     Indication: GASTROOESOPHAGEAL REFLUX DISEASE
     Dosage: 40.0 MG, 1X/DAY
     Route: 048
     Dates: start: 20080601
  6. FENTANYL [Suspect]
     Indication: BACK PAIN
     Dosage: 50 MCG/H 3/WEEK
     Route: 062
     Dates: start: 20080920
  7. RESTEX - SLOW RELEASE [Concomitant]

REACTIONS (1)
  - FAECALOMA [None]
